FAERS Safety Report 23860232 (Version 4)
Quarter: 2024Q3

REPORT INFORMATION
  Report Type: Report from Study
  Country: US (occurrence: US)
  Receive Date: 20240515
  Receipt Date: 20240805
  Transmission Date: 20241016
  Serious: Yes (Hospitalization)
  Sender: ABBVIE
  Company Number: US-ABBVIE-5308228

PATIENT
  Sex: Male

DRUGS (33)
  1. VENCLEXTA [Suspect]
     Active Substance: VENETOCLAX
     Indication: Myelodysplastic syndrome
     Dosage: STRENGTH: 100 MG?TAKE ONE TABLET (100 MG TOTAL) BY MOUTH DAILY WITH FOOD FOR 7 DAYS, OUT OF A MIN...
     Route: 048
  2. VENCLEXTA [Suspect]
     Active Substance: VENETOCLAX
     Indication: Myelodysplastic syndrome
     Dosage: TAKE 1 TABLET BY MOUTH (100MG TOTAL) DAILY WITH FOOD . TAKE ON DAYS 1-7, THEN STOP. REPEAT CYCLE ...
     Route: 048
  3. LIPITOR [Concomitant]
     Active Substance: ATORVASTATIN CALCIUM
     Indication: Product used for unknown indication
     Route: 048
  4. TYLENOL [Concomitant]
     Active Substance: ACETAMINOPHEN
     Indication: Product used for unknown indication
     Dosage: 500-1000 MG EVERY 6 HOURS AS NEEDED
     Route: 048
  5. ZOVIRAX [Concomitant]
     Active Substance: ACYCLOVIR
     Indication: Product used for unknown indication
     Dosage: TAKE 1 TABLET BY MOUTH TWICE A DAY:
     Route: 048
  6. PROTONIX [Concomitant]
     Active Substance: PANTOPRAZOLE SODIUM
     Indication: Product used for unknown indication
     Dosage: 40 MG TABLET DELAYED RESPONSE ENTERIC COATED TABLET\?TAKE 1 TABLET BY MOUTH DAILY
     Route: 048
  7. AMOXIL [Concomitant]
     Active Substance: AMOXICILLIN
     Indication: Product used for unknown indication
     Dosage: TAKE 4 CAPSULES 30 MINUTES TO ONE HOUR BEFORE DENTAL PROCEDURE
     Route: 048
  8. AMOXIL [Concomitant]
     Active Substance: AMOXICILLIN
     Indication: Product used for unknown indication
     Dosage: TAKE 4 CAPSULES 30 MINUTES TO ONE HOUR BEFORE DENTAL PROCEDURE
     Route: 048
  9. AMOXIL [Concomitant]
     Active Substance: AMOXICILLIN
     Indication: Product used for unknown indication
     Dosage: TAKE 4 CAPSULES 30 MINUTES TO ONE HOUR BEFORE DENTAL PROCEDURE
     Route: 048
  10. AMOXIL [Concomitant]
     Active Substance: AMOXICILLIN
     Indication: Product used for unknown indication
     Dosage: TAKE 4 CAPSULES 30 MINUTES TO ONE HOUR BEFORE DENTAL PROCEDURE
     Route: 048
  11. AMOXIL [Concomitant]
     Active Substance: AMOXICILLIN
     Indication: Product used for unknown indication
     Dosage: TAKE 4 CAPSULES 30 MINUTES TO ONE HOUR BEFORE DENTAL PROCEDURE?FORM STRENGTH: 500 MILLIGRAM
     Route: 048
  12. AMOXIL [Concomitant]
     Active Substance: AMOXICILLIN
     Indication: Product used for unknown indication
     Dosage: TAKE 4 CAPSULES 30 MINUTES TO ONE HOUR BEFORE DENTAL PROCEDURE
     Route: 048
  13. MIRALAX [Concomitant]
     Active Substance: POLYETHYLENE GLYCOL 3350
     Indication: Constipation
     Dosage: 17 G POWDER PACKET
     Route: 048
  14. INQOVI [Concomitant]
     Active Substance: CEDAZURIDINE\DECITABINE
     Indication: Product used for unknown indication
     Dosage: 35- 100 MG TABLET?TAKE 1 TABLET BY MOUTH DAILY FOR 5 DAYS
     Route: 048
  15. NORVASC [Concomitant]
     Active Substance: AMLODIPINE BESYLATE
     Indication: Product used for unknown indication
     Dosage: 1 TABLET
     Route: 048
  16. NOXAFIL [Concomitant]
     Active Substance: POSACONAZOLE
     Indication: Product used for unknown indication
     Dosage: 100 MG TABLET DELAYED RESPONSE ENTERIC COATED TABLET?TAKE 3 TABLETS
     Route: 048
  17. FOSAMAX [Concomitant]
     Active Substance: ALENDRONATE SODIUM
     Indication: Product used for unknown indication
     Dosage: WEEKLY 30MIN BEFORE BREAKFAST, SATURDAYS?FORM STRENGTH: 70 MILLIGRAM
     Route: 048
  18. COENZYME Q10 [Concomitant]
     Active Substance: DIETARY SUPPLEMENT\UBIDECARENONE
     Indication: Product used for unknown indication
     Route: 048
  19. KENALOG [Concomitant]
     Active Substance: TRIAMCINOLONE ACETONIDE
     Indication: Product used for unknown indication
     Dosage: 0.1 % CREAM
     Route: 061
  20. KENALOG [Concomitant]
     Active Substance: TRIAMCINOLONE ACETONIDE
     Indication: Product used for unknown indication
     Dosage: 0.1 % CREAM
     Route: 061
  21. KENALOG [Concomitant]
     Active Substance: TRIAMCINOLONE ACETONIDE
     Indication: Product used for unknown indication
     Dosage: 0.1 % CREAM
     Route: 061
  22. KENALOG [Concomitant]
     Active Substance: TRIAMCINOLONE ACETONIDE
     Indication: Product used for unknown indication
     Dosage: 0.1 % CREAM
     Route: 061
  23. KENALOG [Concomitant]
     Active Substance: TRIAMCINOLONE ACETONIDE
     Indication: Product used for unknown indication
     Dosage: 0.1 % CREAM?APPLY EXTERNALLY AS NEEDED
     Route: 061
  24. KENALOG [Concomitant]
     Active Substance: TRIAMCINOLONE ACETONIDE
     Indication: Product used for unknown indication
     Dosage: 0.1 % CREAM
     Route: 061
  25. DOCUSATE CALCIUM [Concomitant]
     Active Substance: DOCUSATE CALCIUM
     Indication: Faeces soft
     Dosage: PO TAKE 1 TABLET BY MOUTH DAILY AS NEEDED
     Route: 048
  26. ZYTIGA [Concomitant]
     Active Substance: ABIRATERONE ACETATE
     Indication: Product used for unknown indication
     Dosage: TAKE 3 TABLETS (750 MG TOTAL) BY MOUTH DAILY. TAKE ON AN EMPTY STOMACH, 1 HOUR  BEFORE OR 2 HOURS...
     Route: 048
  27. FLOMAX [Concomitant]
     Active Substance: TAMSULOSIN HYDROCHLORIDE
     Indication: Product used for unknown indication
     Dosage: 0.4 MG CAPSULE?TAKE 1 CAPSULE (0.4 MG TOTAL) DAILY
     Route: 048
  28. PLAVIX [Concomitant]
     Active Substance: CLOPIDOGREL BISULFATE
     Indication: Product used for unknown indication
     Dosage: TAKE 1 TABLET BY MOUTH DAILY
     Route: 048
  29. LASIX [Concomitant]
     Active Substance: FUROSEMIDE
     Indication: Product used for unknown indication
     Route: 048
  30. DELTASONE [Concomitant]
     Active Substance: PREDNISONE
     Indication: Product used for unknown indication
     Dosage: TAKE 1 TABLET BY MOUTH 2 TIMES DAILY TAKE AFTER MEAL OR WITH FOOD OR MILK?FORM STRENGTH: 5 MG
     Route: 048
  31. TOPROL XL [Concomitant]
     Active Substance: METOPROLOL SUCCINATE
     Indication: Product used for unknown indication
     Dosage: TAKE 100 MG BY MOUTH DAILY?FORM STRENGTH: 100 MILLIGRAM
     Route: 048
  32. ZANAFLEX [Concomitant]
     Active Substance: TIZANIDINE HYDROCHLORIDE
     Indication: Muscle spasms
     Dosage: TAKE 1 TABLET BY MOUTH NIGHTLY AS NEEDED FOR LEG CRAMPS?STRENGTH- 2 MG
     Route: 048
  33. CALCIUM 600 WITH VITAMIN D [Concomitant]
     Indication: Product used for unknown indication
     Dosage: PO TAKE 1 TABLET BY MOUTH 2 TIMES DAILY
     Route: 048

REACTIONS (5)
  - Infection [Unknown]
  - Thrombosis [Unknown]
  - Hypoacusis [Unknown]
  - Off label use [Unknown]
  - Confusional state [Unknown]
